FAERS Safety Report 11719370 (Version 1)
Quarter: 2015Q4

REPORT INFORMATION
  Report Type: Spontaneous
  Country: US (occurrence: None)
  Receive Date: 20151109
  Receipt Date: 20151109
  Transmission Date: 20160304
  Serious: Yes (Life-Threatening, Hospitalization, Other)
  Sender: FDA-Public Use
  Company Number: None

PATIENT
  Age: 41 Year
  Sex: Female
  Weight: 85.73 kg

DRUGS (4)
  1. C B X HEMP OIL [Concomitant]
  2. DAILY WOMAN^S VITAMIN [Concomitant]
  3. FENTANYL. [Suspect]
     Active Substance: FENTANYL
     Indication: CANCER PAIN
     Dosage: PATCH?3 DAYS RARELY STAY?APPLIED TO A SURFACE, USUALLY THE SKIN
  4. B 12 VITAMINS [Concomitant]

REACTIONS (5)
  - Fall [None]
  - Hallucination [None]
  - Application site erythema [None]
  - Hypersensitivity [None]
  - Somnolence [None]

NARRATIVE: CASE EVENT DATE: 20150914
